FAERS Safety Report 12583033 (Version 2)
Quarter: 2016Q3

REPORT INFORMATION
  Report Type: Spontaneous
  Country: JP (occurrence: JP)
  Receive Date: 20160722
  Receipt Date: 20160729
  Transmission Date: 20161109
  Serious: Yes (Other)
  Sender: FDA-Public Use
  Company Number: JP-CONCORDIA PHARMACEUTICALS INC.-CO-ZO-JP-2016-079

PATIENT
  Age: 76 Year
  Sex: Female

DRUGS (14)
  1. HORIZON [Concomitant]
     Active Substance: DIAZEPAM
     Indication: SOMATIC SYMPTOM DISORDER
     Route: 048
     Dates: start: 20160313
  2. ZONISAMIDE. [Interacting]
     Active Substance: ZONISAMIDE
     Route: 048
     Dates: start: 20151111, end: 20151120
  3. MAGMITT [Concomitant]
     Active Substance: MAGNESIUM OXIDE
     Indication: CONSTIPATION
     Route: 048
     Dates: start: 20160107
  4. LYRICA [Concomitant]
     Active Substance: PREGABALIN
     Indication: PRODUCT USED FOR UNKNOWN INDICATION
     Route: 048
     Dates: start: 20160412
  5. ZONISAMIDE. [Interacting]
     Active Substance: ZONISAMIDE
     Route: 048
     Dates: start: 20151121, end: 20160101
  6. DRAMAMINE [Concomitant]
     Active Substance: DIMENHYDRINATE
     Indication: DIZZINESS
     Route: 048
     Dates: start: 20160514, end: 20160520
  7. ZONISAMIDE. [Suspect]
     Active Substance: ZONISAMIDE
     Indication: EPILEPSY
     Route: 048
     Dates: start: 20071101
  8. ZONISAMIDE. [Interacting]
     Active Substance: ZONISAMIDE
     Route: 048
     Dates: start: 20160102, end: 20160517
  9. TSUMURA GOSHAJINKIGAN EXTRACT GRANULES FOR ETHICAL USE [Concomitant]
     Indication: PAIN IN EXTREMITY
     Route: 048
     Dates: start: 20160413, end: 20160517
  10. HALCION [Concomitant]
     Active Substance: TRIAZOLAM
     Indication: INSOMNIA
     Route: 048
     Dates: start: 20151224
  11. TSUMURA GOSHAJINKIGAN EXTRACT GRANULES FOR ETHICAL USE [Concomitant]
     Indication: ANXIETY
  12. E KEPPRA [Concomitant]
     Active Substance: LEVETIRACETAM
     Indication: EPILEPSY
     Route: 048
     Dates: start: 20151113
  13. DRAMAMINE [Concomitant]
     Active Substance: DIMENHYDRINATE
     Indication: ANXIETY
  14. TOFRANIL [Interacting]
     Active Substance: IMIPRAMINE HYDROCHLORIDE
     Indication: DEPRESSIVE SYMPTOM
     Route: 048
     Dates: start: 20160412, end: 20160516

REACTIONS (3)
  - Hepatic function abnormal [Recovered/Resolved]
  - Drug interaction [Recovered/Resolved]
  - Parkinsonism [Recovered/Resolved]

NARRATIVE: CASE EVENT DATE: 20160421
